FAERS Safety Report 23197460 (Version 1)
Quarter: 2023Q4

REPORT INFORMATION
  Report Type: Spontaneous
  Country: CN (occurrence: CN)
  Receive Date: 20231117
  Receipt Date: 20231117
  Transmission Date: 20240110
  Serious: Yes (Hospitalization, Other)
  Sender: FDA-Public Use
  Company Number: CN-drreddys-SPO/CHN/23/0183317

PATIENT
  Age: 74 Year
  Sex: Female

DRUGS (12)
  1. CLOPIDOGREL [Interacting]
     Active Substance: CLOPIDOGREL BISULFATE
     Indication: Cerebral infarction
     Dates: start: 20230223, end: 20230421
  2. ESCITALOPRAM [Interacting]
     Active Substance: ESCITALOPRAM OXALATE
     Indication: Depression
     Dates: start: 20230227, end: 20230415
  3. CLOZAPINE [Concomitant]
     Active Substance: CLOZAPINE
     Indication: Depression
     Dates: start: 200707, end: 20150924
  4. CLOZAPINE [Concomitant]
     Active Substance: CLOZAPINE
     Indication: Schizophrenia
     Dates: start: 20230223, end: 20230413
  5. CLOZAPINE [Concomitant]
     Active Substance: CLOZAPINE
     Dosage: QD
     Dates: start: 202207, end: 20230223
  6. CLOZAPINE [Concomitant]
     Active Substance: CLOZAPINE
     Dosage: DOSE IS UNCLEAR
     Dates: start: 20151024, end: 202207
  7. POTASSIUM CHLORIDE [Concomitant]
     Active Substance: POTASSIUM CHLORIDE
     Indication: Hypokalaemia
     Dates: start: 20230301, end: 20230310
  8. POTASSIUM CHLORIDE [Concomitant]
     Active Substance: POTASSIUM CHLORIDE
     Dates: start: 20230322, end: 20230331
  9. POTASSIUM CHLORIDE [Concomitant]
     Active Substance: POTASSIUM CHLORIDE
     Dates: start: 20230412, end: 20230413
  10. ESTAZOLAM [Concomitant]
     Active Substance: ESTAZOLAM
     Indication: Insomnia
     Dosage: QN
     Dates: start: 20230223
  11. ROSUVASTATIN [Concomitant]
     Active Substance: ROSUVASTATIN
     Indication: Hyperlipidaemia
     Dosage: 10 MG QN
     Dates: start: 20230223
  12. VALSARTAN [Concomitant]
     Active Substance: VALSARTAN
     Indication: Hypertension
     Dates: start: 20230227

REACTIONS (4)
  - Serotonin syndrome [Unknown]
  - Gastric haemorrhage [Unknown]
  - Drug interaction [Recovered/Resolved]
  - Antidepressant drug level increased [Unknown]

NARRATIVE: CASE EVENT DATE: 20230412
